FAERS Safety Report 14690521 (Version 1)
Quarter: 2018Q1

REPORT INFORMATION
  Report Type: Spontaneous
  Country: TW (occurrence: TW)
  Receive Date: 20180328
  Receipt Date: 20180328
  Transmission Date: 20180509
  Serious: Yes (Other)
  Sender: FDA-Public Use
  Company Number: TW-009507513-1803TWN010806

PATIENT
  Age: 67 Year
  Sex: Female

DRUGS (2)
  1. KEYTRUDA [Suspect]
     Active Substance: PEMBROLIZUMAB
     Dosage: UNK, CYCLICAL
  2. CISPLATIN (+) GEMCITABINE [Concomitant]
     Dosage: UNK, CYCLICAL

REACTIONS (1)
  - Duodenal obstruction [Unknown]
